FAERS Safety Report 19182008 (Version 1)
Quarter: 2021Q2

REPORT INFORMATION
  Report Type: Spontaneous
  Country: CN (occurrence: CN)
  Receive Date: 20210426
  Receipt Date: 20210426
  Transmission Date: 20210717
  Serious: Yes (Hospitalization)
  Sender: FDA-Public Use
  Company Number: CN-PFIZER INC-2021426515

PATIENT
  Age: 62 Year
  Sex: Female
  Weight: 52.5 kg

DRUGS (5)
  1. CYTOSAR [Suspect]
     Active Substance: CYTARABINE
     Indication: ACUTE LYMPHOCYTIC LEUKAEMIA
     Dosage: 1.56 G, 1X/DAY
     Route: 041
     Dates: start: 20210324, end: 20210325
  2. METHOTREXATE. [Suspect]
     Active Substance: METHOTREXATE
     Dosage: 1.36 G, 1X/DAY
     Route: 041
     Dates: start: 20210323, end: 20210323
  3. METHOTREXATE. [Suspect]
     Active Substance: METHOTREXATE
     Indication: ACUTE LYMPHOCYTIC LEUKAEMIA
     Dosage: 0.2 G, 1X/DAY
     Route: 041
     Dates: start: 20210323, end: 20210323
  4. CYTOSAR [Suspect]
     Active Substance: CYTARABINE
     Dosage: 0.050 G, 1X/DAY
     Route: 037
     Dates: start: 20210324, end: 20210324
  5. CYTOSAR [Suspect]
     Active Substance: CYTARABINE
     Dosage: 1.56 G, 1X/DAY
     Route: 041
     Dates: start: 20210324, end: 20210325

REACTIONS (1)
  - Myelosuppression [Recovering/Resolving]

NARRATIVE: CASE EVENT DATE: 20210404
